FAERS Safety Report 6967693-6 (Version None)
Quarter: 2010Q3

REPORT INFORMATION
  Report Type: 
  Country: None (occurrence: None)
  Receive Date: 20100907
  Receipt Date: 20100831
  Transmission Date: 20110219
  Serious: No
  Sender: FDA-Public Use
  Company Number: US-PFIZER INC-2010110422

PATIENT
  Sex: Male
  Weight: 86.168 kg

DRUGS (1)
  1. CELEBREX [Suspect]
     Indication: OEDEMA PERIPHERAL
     Dosage: 200 MG, 2X/DAY
     Route: 048
     Dates: start: 20100823, end: 20100831

REACTIONS (6)
  - ABDOMINAL PAIN UPPER [None]
  - ANORECTAL DISCOMFORT [None]
  - CONSTIPATION [None]
  - DIZZINESS [None]
  - DYSPEPSIA [None]
  - FLATULENCE [None]
